FAERS Safety Report 7624737-6 (Version None)
Quarter: 2011Q3

REPORT INFORMATION
  Report Type: 
  Country: None (occurrence: None)
  Receive Date: 20110720
  Receipt Date: 20110713
  Transmission Date: 20111222
  Serious: Yes (Hospitalization, Other)
  Sender: FDA-Public Use
  Company Number: FR-B.I. PHARMACEUTICALS,INC./RIDGEFIELD-2011-FF-00686FF

PATIENT
  Sex: Male

DRUGS (14)
  1. ACUPAN [Suspect]
     Indication: PROCEDURAL PAIN
     Route: 048
     Dates: start: 20110510, end: 20110519
  2. ATORVASTATIN CALCIUM [Concomitant]
     Indication: HYPERCHOLESTEROLAEMIA
     Dosage: 40 MG
     Route: 048
  3. DIAMICRON [Concomitant]
     Indication: TYPE 2 DIABETES MELLITUS
     Route: 048
     Dates: start: 20110519, end: 20110524
  4. METFORMIN HCL [Concomitant]
     Indication: TYPE 2 DIABETES MELLITUS
     Dosage: 2100 MG
     Route: 048
  5. PRADAXA [Suspect]
     Indication: THROMBOSIS PROPHYLAXIS
     Dosage: 150 MG
     Route: 048
     Dates: start: 20110510, end: 20110519
  6. JANUVIA [Concomitant]
     Indication: TYPE 2 DIABETES MELLITUS
     Route: 048
     Dates: start: 20110519, end: 20110524
  7. GLUCOR [Concomitant]
     Indication: TYPE 2 DIABETES MELLITUS
     Route: 048
     Dates: end: 20110518
  8. ACTRAPID [Concomitant]
     Indication: TYPE 2 DIABETES MELLITUS
     Route: 058
     Dates: start: 20110519, end: 20110520
  9. LOVENOX [Concomitant]
     Indication: THROMBOSIS PROPHYLAXIS
     Dosage: 0.4 ML
     Route: 058
     Dates: start: 20110521, end: 20110524
  10. CALCIPARINE [Suspect]
     Indication: THROMBOSIS PROPHYLAXIS
     Dosage: 15000 U
     Route: 058
     Dates: start: 20110519, end: 20110520
  11. ACETAMINOPHEN [Concomitant]
     Indication: PAIN
     Route: 048
  12. CHONDROSULF [Concomitant]
     Indication: OSTEOARTHRITIS
     Dosage: 1200 MG
     Route: 048
  13. APROVEL [Concomitant]
     Indication: HYPERTENSION
     Dosage: 300 MG
     Route: 048
  14. DOXAZOSIN MESYLATE [Concomitant]
     Indication: PROSTATIC ADENOMA
     Route: 048
     Dates: end: 20110524

REACTIONS (6)
  - URINARY RETENTION [None]
  - ANAEMIA [None]
  - DRUG INTERACTION [None]
  - HAEMATOMA [None]
  - RENAL FAILURE ACUTE [None]
  - HAEMATURIA [None]
